FAERS Safety Report 23874865 (Version 4)
Quarter: 2024Q3

REPORT INFORMATION
  Report Type: Spontaneous
  Country: US (occurrence: US)
  Receive Date: 20240520
  Receipt Date: 20240930
  Transmission Date: 20241017
  Serious: Yes (Other)
  Sender: BIOVITRUM
  Company Number: US-BIOVITRUM-2024-US-007267

PATIENT
  Age: 77 Year
  Sex: Female

DRUGS (3)
  1. VONJO [Suspect]
     Active Substance: PACRITINIB
     Indication: Myeloproliferative neoplasm
     Dosage: TWICE DAILY
     Route: 048
     Dates: start: 20240209
  2. VONJO [Suspect]
     Active Substance: PACRITINIB
     Dosage: DAILY
     Route: 048
     Dates: start: 20240209
  3. VONJO [Suspect]
     Active Substance: PACRITINIB
     Dosage: TAKE 1 CAPSULE BY MOUTH TWICE DAILY
     Route: 048
     Dates: start: 20240620

REACTIONS (5)
  - Deafness [Unknown]
  - Incorrect dose administered [Unknown]
  - Product dose omission issue [Unknown]
  - Night sweats [Unknown]
  - Ear congestion [Unknown]
